FAERS Safety Report 6074388-2 (Version None)
Quarter: 2009Q1

REPORT INFORMATION
  Report Type: 
  Country: None (occurrence: None)
  Receive Date: 20090206
  Receipt Date: 20090128
  Transmission Date: 20090719
  Serious: Yes (Other)
  Sender: FDA-Public Use
  Company Number: 2009JP000539

PATIENT
  Age: 18 Year
  Sex: Male

DRUGS (7)
  1. PROGRAF [Suspect]
     Indication: CORD BLOOD TRANSPLANT THERAPY
     Dosage: /D
  2. IFOSFAMIDE (IFOSFAMIDE) FORMULATION UNKNOWN [Concomitant]
  3. CARBOPLATIN (CARBOPLATIN) FORMULATION UNKNOWN [Concomitant]
  4. ETOPOSIDE [Concomitant]
  5. FLUDARABINE (FLUDARABINE) FORMULATION UNKNOWN [Concomitant]
  6. L-PAM (MELPHALAN) FORMULATION UNKNOWN [Concomitant]
  7. METHOTREXATE [Concomitant]

REACTIONS (3)
  - ENGRAFTMENT SYNDROME [None]
  - GASTROINTESTINAL DISORDER [None]
  - THROMBOTIC MICROANGIOPATHY [None]
